FAERS Safety Report 16535732 (Version 1)
Quarter: 2019Q3

REPORT INFORMATION
  Report Type: Spontaneous
  Country: ES (occurrence: ES)
  Receive Date: 20190705
  Receipt Date: 20190705
  Transmission Date: 20191004
  Serious: Yes (Other)
  Sender: FDA-Public Use
  Company Number: ES-ROCHE-2344170

PATIENT
  Sex: Male
  Weight: 76 kg

DRUGS (12)
  1. RITUXIMAB. [Suspect]
     Active Substance: RITUXIMAB
     Indication: DIFFUSE LARGE B-CELL LYMPHOMA
     Route: 065
  2. ETOPOSIDE. [Concomitant]
     Active Substance: ETOPOSIDE
  3. PREDNISOLONE. [Concomitant]
     Active Substance: PREDNISOLONE
  4. DOXORUBICIN [Concomitant]
     Active Substance: DOXORUBICIN
  5. VINCRISTINE [Concomitant]
     Active Substance: VINCRISTINE
  6. OXALIPLATIN. [Concomitant]
     Active Substance: OXALIPLATIN
  7. CYCLOPHOSPHAMIDE. [Concomitant]
     Active Substance: CYCLOPHOSPHAMIDE
  8. METHYLPREDNISOLONE. [Concomitant]
     Active Substance: METHYLPREDNISOLONE
  9. CYTARABINE. [Concomitant]
     Active Substance: CYTARABINE
  10. CISPLATIN. [Suspect]
     Active Substance: CISPLATIN
     Indication: DIFFUSE LARGE B-CELL LYMPHOMA
     Route: 065
  11. METHOTREXATE. [Concomitant]
     Active Substance: METHOTREXATE
  12. GEMCITABINE. [Concomitant]
     Active Substance: GEMCITABINE

REACTIONS (4)
  - Synovial cyst [Unknown]
  - Cellulitis [Unknown]
  - Nephropathy toxic [Unknown]
  - Mesenteric panniculitis [Unknown]
